FAERS Safety Report 16979707 (Version 1)
Quarter: 2019Q4

REPORT INFORMATION
  Report Type: Spontaneous
  Country: US (occurrence: US)
  Receive Date: 20191031
  Receipt Date: 20191031
  Transmission Date: 20200122
  Serious: Yes (Other)
  Sender: FDA-Public Use
  Company Number: US-BAUSCH-BL-2019-059370

PATIENT

DRUGS (1)
  1. PLENVU [Suspect]
     Active Substance: ASCORBIC ACID\POLYETHYLENE GLYCOL 3350\POTASSIUM CHLORIDE\SODIUM ASCORBATE\SODIUM CHLORIDE\SODIUM SULFATE
     Indication: BOWEL PREPARATION
     Dosage: TREATMENT FOR LESS THAN ONE MONTH
     Route: 065

REACTIONS (7)
  - Asthenia [Unknown]
  - Blood pressure increased [Unknown]
  - Insomnia [Unknown]
  - Product taste abnormal [Unknown]
  - Presyncope [Unknown]
  - Ill-defined disorder [Unknown]
  - Chills [Unknown]
